FAERS Safety Report 12859585 (Version 1)
Quarter: 2016Q4

REPORT INFORMATION
  Report Type: Report from Study
  Country: US (occurrence: US)
  Receive Date: 20161018
  Receipt Date: 20161018
  Transmission Date: 20170207
  Serious: Yes (Hospitalization, Other)
  Sender: FDA-Public Use
  Company Number: US-BRISTOL-MYERS SQUIBB COMPANY-BMS-2016-086465

PATIENT
  Age: 38 Year
  Sex: Male
  Weight: 59.6 kg

DRUGS (3)
  1. NIVOLUMAB [Suspect]
     Active Substance: NIVOLUMAB
     Indication: DIFFUSE LARGE B-CELL LYMPHOMA
     Dosage: 240 MG, Q2WK
     Route: 042
     Dates: start: 20160808, end: 20160908
  2. ACYCLOVIR                          /00587301/ [Concomitant]
     Active Substance: ACYCLOVIR
     Indication: PRODUCT USED FOR UNKNOWN INDICATION
     Route: 065
  3. INCB24360 [Suspect]
     Active Substance: EPACADOSTAT
     Indication: DIFFUSE LARGE B-CELL LYMPHOMA
     Dosage: 300 MG, BID
     Route: 048
     Dates: start: 20160808, end: 20160919

REACTIONS (1)
  - Febrile neutropenia [Recovered/Resolved]

NARRATIVE: CASE EVENT DATE: 20160920
